FAERS Safety Report 6810106-5 (Version None)
Quarter: 2010Q2

REPORT INFORMATION
  Report Type: 
  Country: None (occurrence: None)
  Receive Date: 20100630
  Receipt Date: 20100621
  Transmission Date: 20101027
  Serious: Yes (Hospitalization)
  Sender: FDA-Public Use
  Company Number: US-JNJFOC-20100507590

PATIENT
  Sex: Female
  Weight: 72.58 kg

DRUGS (12)
  1. REMICADE [Suspect]
     Indication: RHEUMATOID ARTHRITIS
     Dosage: ON INFLIXIMAB FOR AT LEAST A YEAR
     Route: 042
  2. REMICADE [Suspect]
     Route: 042
  3. REMICADE [Suspect]
     Route: 042
  4. REMICADE [Suspect]
     Route: 042
  5. ARAVA [Concomitant]
     Indication: RHEUMATOID ARTHRITIS
  6. PREDNISONE [Concomitant]
     Indication: RHEUMATOID ARTHRITIS
  7. DICLOFENAC SODIUM [Concomitant]
     Indication: PAIN
  8. HYDROCHLOROTHIAZIDE [Concomitant]
  9. LISINOPRIL [Concomitant]
     Indication: MIGRAINE
  10. TRICOR [Concomitant]
     Indication: BLOOD CHOLESTEROL
  11. ZOCOR [Concomitant]
     Indication: BLOOD CHOLESTEROL
  12. EFFEXOR [Concomitant]

REACTIONS (15)
  - APHTHOUS STOMATITIS [None]
  - ARTHRALGIA [None]
  - CHEST PAIN [None]
  - COLON OPERATION [None]
  - DIVERTICULITIS [None]
  - DRUG SPECIFIC ANTIBODY PRESENT [None]
  - EYE SWELLING [None]
  - INFUSION RELATED REACTION [None]
  - LUPUS-LIKE SYNDROME [None]
  - OEDEMA PERIPHERAL [None]
  - PAIN [None]
  - PAIN IN EXTREMITY [None]
  - PRURITUS GENERALISED [None]
  - STAPHYLOCOCCAL INFECTION [None]
  - URTICARIA [None]
